FAERS Safety Report 25949753 (Version 1)
Quarter: 2025Q4

REPORT INFORMATION
  Report Type: Spontaneous
  Country: US (occurrence: US)
  Receive Date: 20251022
  Receipt Date: 20251022
  Transmission Date: 20260118
  Serious: Yes (Other)
  Sender: PFIZER
  Company Number: US-PFIZER INC-PV202500124848

PATIENT
  Age: 66 Year
  Sex: Female

DRUGS (1)
  1. NURTEC ODT [Suspect]
     Active Substance: RIMEGEPANT SULFATE
     Dosage: 75 MG, AS NEEDED(TAKE 1 TABLET DAILY AS NEEDED)
     Route: 048

REACTIONS (1)
  - Oral surgery [Unknown]
